FAERS Safety Report 6244395-5 (Version None)
Quarter: 2009Q2

REPORT INFORMATION
  Report Type: 
  Country: None (occurrence: None)
  Receive Date: 20090625
  Receipt Date: 20090622
  Transmission Date: 20091009
  Serious: Yes (Other)
  Sender: FDA-Public Use
  Company Number: US-ASTRAZENECA-2009UW16459

PATIENT
  Age: 63 Year
  Sex: Male
  Weight: 81.6 kg

DRUGS (4)
  1. CRESTOR [Suspect]
     Indication: BLOOD CHOLESTEROL INCREASED
     Route: 048
     Dates: start: 20090120, end: 20090607
  2. LOVASA [Concomitant]
  3. ATENOLOL [Concomitant]
  4. AZULFADINE [Concomitant]

REACTIONS (3)
  - ABASIA [None]
  - MYALGIA [None]
  - WEIGHT DECREASED [None]
